FAERS Safety Report 14479162 (Version 1)
Quarter: 2018Q1

REPORT INFORMATION
  Report Type: Spontaneous
  Country: FR (occurrence: FR)
  Receive Date: 20180202
  Receipt Date: 20180202
  Transmission Date: 20180509
  Serious: Yes (Other)
  Sender: FDA-Public Use
  Company Number: FR-ALKEM LABORATORIES LIMITED-FR-ALKEM-2018-00336

PATIENT
  Age: 74 Year
  Sex: Male

DRUGS (1)
  1. CEFUROXIME AXETIL. [Suspect]
     Active Substance: CEFUROXIME AXETIL
     Indication: PRODUCT USED FOR UNKNOWN INDICATION
     Dosage: UNK
     Route: 065

REACTIONS (7)
  - Ocular hypertension [Recovering/Resolving]
  - Serous retinal detachment [Recovering/Resolving]
  - Ocular toxicity [Recovering/Resolving]
  - Anterior chamber inflammation [Recovering/Resolving]
  - Intraocular pressure increased [Recovering/Resolving]
  - Macular oedema [Recovering/Resolving]
  - Drug administration error [Unknown]
